FAERS Safety Report 5637885-7 (Version None)
Quarter: 2008Q1

REPORT INFORMATION
  Report Type: 
  Country: None (occurrence: None)
  Receive Date: 20080220
  Receipt Date: 20080130
  Transmission Date: 20080703
  Serious: Yes (Hospitalization)
  Sender: FDA-Public Use
  Company Number: B0508499A

PATIENT
  Age: 55 Year
  Sex: Male

DRUGS (1)
  1. AMOXICILLIN TRIHYDRATE [Suspect]
     Indication: ANTIBIOTIC PROPHYLAXIS
     Dosage: 500 MG / SINGLE DOSE / ORAL
     Route: 048

REACTIONS (4)
  - CHILLS [None]
  - HEADACHE [None]
  - MENINGITIS ASEPTIC [None]
  - PYREXIA [None]
